FAERS Safety Report 25128350 (Version 2)
Quarter: 2025Q2

REPORT INFORMATION
  Report Type: Other
  Country: GB (occurrence: GB)
  Receive Date: 20250327
  Receipt Date: 20250403
  Transmission Date: 20250717
  Serious: Yes (Hospitalization, Other)
  Sender: MACLEODS
  Company Number: GB-MYLANLABS-2024M1028947

PATIENT

DRUGS (18)
  1. EZETIMIBE [Suspect]
     Active Substance: EZETIMIBE
     Indication: Product used for unknown indication
     Dosage: 1 DOSAGE FORM, QD (EACH MORNING 7X10MG IN MDS)
     Route: 048
  2. LANSOPRAZOLE [Suspect]
     Active Substance: LANSOPRAZOLE
     Indication: Product used for unknown indication
     Dosage: 1 DOSAGE FORM, QD (EACH MORNING 7X30MG IN MDS)
     Route: 048
  3. IVABRADINE [Suspect]
     Active Substance: IVABRADINE
     Indication: Product used for unknown indication
     Dosage: 1 DOSAGE FORM, BID (POS)
     Route: 048
  4. ASPIRIN [Suspect]
     Active Substance: ASPIRIN
     Indication: Product used for unknown indication
     Dosage: 1 DOSAGE FORM, QD (EACH MORNING 7X75MG IN MDS)
     Route: 048
  5. ACETAMINOPHEN [Suspect]
     Active Substance: ACETAMINOPHEN
     Indication: Bladder irrigation
     Dosage: 2 DOSAGE FORM, QID (FOUR TIMES A DAY WHEN REQUIRED 32X500MG)
     Route: 048
  6. AMISULPRIDE [Suspect]
     Active Substance: AMISULPRIDE
     Indication: Product used for unknown indication
     Dosage: 1 DOSAGE FORM, QD (EACH MORNING 7X200MG IN MDS)
     Route: 048
  7. BUSPIRONE [Suspect]
     Active Substance: BUSPIRONE HYDROCHLORIDE
     Indication: Product used for unknown indication
     Dosage: 1 DOSAGE FORM, BID (POS)
     Route: 048
  8. CLOZARIL [Suspect]
     Active Substance: CLOZAPINE
     Indication: Schizophrenia
     Dosage: 2 DOSAGE FORM, QD (AT BEDTIME 14X25MG IN MDS)
     Route: 048
  9. CLOZARIL [Suspect]
     Active Substance: CLOZAPINE
     Dosage: 3 DOSAGE FORM, QD (EACH MORNING 21X25MG IN MDS)
     Route: 048
  10. CLOZARIL [Suspect]
     Active Substance: CLOZAPINE
     Route: 048
     Dates: start: 20150414
  11. CLOZARIL [Suspect]
     Active Substance: CLOZAPINE
     Dosage: 1 DOSAGE FORM, QD (AT BEDTIME 7X100MG IN MDS)
     Route: 048
  12. FUROSEMIDE [Suspect]
     Active Substance: FUROSEMIDE
     Indication: Product used for unknown indication
     Dosage: 1 DOSAGE FORM, QD (EACH MORNING 7X20MG IN MDS)
     Route: 048
  13. LANTUS SOLOSTAR [Suspect]
     Active Substance: INSULIN GLARGINE
     Indication: Product used for unknown indication
     Dosage: UNK, QD (25UNITS ONCE DAILY WITH BREAKFAST WARD STOCK LABELLED + 2X3ML PENS), LANTAS SOLOSTAR
     Route: 058
  14. POLYETHYLENE GLYCOL 3350\POTASSIUM CHLORIDE\SODIUM BICARBONATE\SODIUM [Suspect]
     Active Substance: POLYETHYLENE GLYCOL 3350\POTASSIUM CHLORIDE\SODIUM BICARBONATE\SODIUM CHLORIDE
     Indication: Constipation
     Dosage: 1 DOSAGE FORM, QD (ONE SACHET ONCE A DAY WHEN  REQUIRED FOR CONSTIPATION 20 SACHETS SUPPLIED)
     Route: 048
  15. METHENAMINE HIPPURATE [Suspect]
     Active Substance: METHENAMINE HIPPURATE
     Indication: Product used for unknown indication
     Dosage: 1 DOSAGE FORM, QD (IN THE MORNING) 14X1GRAM IN MDS
     Route: 048
  16. METHENAMINE HIPPURATE [Suspect]
     Active Substance: METHENAMINE HIPPURATE
     Dosage: 1 DOSAGE FORM, QD (AT BEDTIME) 14X1GRAM IN MDS
     Route: 048
  17. TRIMETHOPRIM [Concomitant]
     Active Substance: TRIMETHOPRIM
     Indication: Urinary tract infection
     Route: 065
  18. Pivemacillin [Concomitant]
     Indication: Urinary tract infection
     Route: 065

REACTIONS (8)
  - Endocarditis enterococcal [Recovered/Resolved]
  - Cardiac failure [Unknown]
  - Aortic valve replacement [Unknown]
  - Mitral valve replacement [Unknown]
  - Emotional distress [Unknown]
  - Respiratory syncytial virus test positive [Unknown]
  - Hypotension [Unknown]
  - Fall [Unknown]

NARRATIVE: CASE EVENT DATE: 20240101
